FAERS Safety Report 8493601-5 (Version None)
Quarter: 2012Q3

REPORT INFORMATION
  Report Type: 
  Country: None (occurrence: None)
  Receive Date: 20120706
  Receipt Date: 20120702
  Transmission Date: 20120928
  Serious: Yes (Hospitalization, Other)
  Sender: FDA-Public Use
  Company Number: FR-PFIZER INC-2012157530

PATIENT
  Age: 67 Year
  Sex: Male

DRUGS (17)
  1. ATORVASTATIN [Suspect]
     Indication: HYPERCHOLESTEROLAEMIA
     Dosage: 40 MG, 1X/DAY
     Route: 048
     Dates: start: 20120217
  2. CORDARONE [Concomitant]
     Dosage: 200 MG, UNK
  3. COUMADIN [Suspect]
     Indication: ATRIAL FIBRILLATION
     Dosage: 3.75 MG, 1X/DAY
     Route: 048
     Dates: start: 20050101, end: 20120314
  4. LASIX [Suspect]
     Dosage: 40 MG, 2X/DAY
     Route: 048
     Dates: start: 20120217
  5. IMURAN [Suspect]
     Indication: ALLERGIC GRANULOMATOUS ANGIITIS
     Dosage: 75 MG, 1X/DAY
     Route: 048
     Dates: start: 20120302
  6. VITAMIN B1 AND B6 [Suspect]
     Dosage: 1 DF, 2X/DAY
     Route: 048
     Dates: start: 20120217
  7. PREDNISONE TAB [Suspect]
     Indication: ALLERGIC GRANULOMATOUS ANGIITIS
     Dosage: 30 MG, 1X/DAY
     Route: 048
     Dates: start: 20120302
  8. ACTONEL [Suspect]
     Dosage: 35 MG, WEEKLY
     Route: 048
     Dates: start: 20120302
  9. CALCIDOSE VITAMINE D [Suspect]
     Indication: OSTEOPOROSIS
     Dosage: 1 DF, 2X/DAY
     Route: 048
     Dates: start: 20120302
  10. BISOPROLOL FUMARATE [Suspect]
     Dosage: 1.25 MG, 1X/DAY
     Route: 048
  11. POTASSIUM CHLORIDE [Suspect]
     Indication: HYPOKALAEMIA
     Dosage: 1 DF, 3X/DAY
     Route: 048
     Dates: start: 20120217
  12. LYRICA [Suspect]
     Dosage: 25 MG, 2X/DAY
     Route: 048
     Dates: start: 20120217
  13. ALFUZOSIN HYDROCHLORIDE [Suspect]
     Dosage: 10 MG, DAILY
     Route: 048
     Dates: start: 20120217
  14. CEFTRIAXONE SODIUM [Interacting]
     Indication: SEPTIC SHOCK
     Dosage: 1 DF, 1X/DAY
     Route: 042
     Dates: start: 20120312
  15. SYMBICORT [Suspect]
     Dosage: 1 DF, 2X/DAY
     Route: 055
  16. PREDNISONE TAB [Suspect]
     Dosage: UNK
     Route: 048
  17. ROVAMYCINE [Interacting]
     Indication: SEPTIC SHOCK
     Dosage: 1500000 IU, 3X/DAY
     Route: 042
     Dates: start: 20120312, end: 20120316

REACTIONS (4)
  - SEPSIS [None]
  - DRUG INTERACTION [None]
  - ACUTE PULMONARY OEDEMA [None]
  - ABDOMINAL WALL HAEMATOMA [None]
